FAERS Safety Report 5014598-6 (Version None)
Quarter: 2006Q2

REPORT INFORMATION
  Report Type: 
  Country: None (occurrence: None)
  Receive Date: 20060531
  Receipt Date: 20050926
  Transmission Date: 20061013
  Serious: Yes (Other)
  Sender: FDA-Public Use
  Company Number: PHEH2005US10680

PATIENT
  Age: 59 Year
  Sex: Male

DRUGS (15)
  1. ZOMETA [Suspect]
     Indication: METASTASES TO BONE
     Dosage: UNK, QMO
     Dates: start: 20020201, end: 20040201
  2. TAXOTERE [Concomitant]
     Dates: end: 20020701
  3. VICODIN [Concomitant]
     Indication: PAIN
     Dosage: UNK, PRN
  4. OXYCONTIN [Concomitant]
  5. MS CONTIN [Concomitant]
  6. AMBIEN [Concomitant]
     Indication: SLEEP DISORDER
  7. HORMONES [Concomitant]
  8. LUPRON [Concomitant]
     Indication: PROSTATE CANCER
  9. CASODEX [Concomitant]
     Indication: PROSTATE CANCER
  10. EFFEXOR [Concomitant]
  11. CARDURA /JOR/ [Concomitant]
  12. SENOKOT /USA/ [Concomitant]
  13. MELATONIN [Concomitant]
  14. DURAGESIC-100 [Concomitant]
     Dosage: UNK, PRN
  15. NEXIUM [Concomitant]

REACTIONS (37)
  - ANDROGEN DEFICIENCY [None]
  - ASTHENIA [None]
  - BACK PAIN [None]
  - BONE DEBRIDEMENT [None]
  - BONE DENSITY DECREASED [None]
  - BONE DISORDER [None]
  - CHOKING [None]
  - CHRONIC OBSTRUCTIVE PULMONARY DISEASE [None]
  - COUGH [None]
  - DYSGEUSIA [None]
  - DYSPHONIA [None]
  - DYSPNOEA [None]
  - DYSPNOEA EXERTIONAL [None]
  - ENDODONTIC PROCEDURE [None]
  - FATIGUE [None]
  - HAEMOPTYSIS [None]
  - HOT FLUSH [None]
  - LARYNGOSPASM [None]
  - LOOSE TOOTH [None]
  - NASAL CONGESTION [None]
  - NASAL ULCER [None]
  - OSTEONECROSIS [None]
  - PHARYNGOLARYNGEAL PAIN [None]
  - PLEURITIC PAIN [None]
  - PNEUMONIA [None]
  - POSTNASAL DRIP [None]
  - PULMONARY EMBOLISM [None]
  - PYREXIA [None]
  - SEQUESTRECTOMY [None]
  - TONGUE INJURY [None]
  - TOOTH DISORDER [None]
  - TOOTH EXTRACTION [None]
  - TOOTH INFECTION [None]
  - TOOTH LOSS [None]
  - TOOTHACHE [None]
  - UPPER RESPIRATORY TRACT INFECTION [None]
  - WHEEZING [None]
